FAERS Safety Report 8582756-X (Version None)
Quarter: 2012Q3

REPORT INFORMATION
  Report Type: 
  Country: None (occurrence: None)
  Receive Date: 20120809
  Receipt Date: 20120802
  Transmission Date: 20120928
  Serious: Yes (Other)
  Sender: FDA-Public Use
  Company Number: JP-PFIZER INC-2012189295

PATIENT
  Age: 70 Year
  Sex: Male

DRUGS (8)
  1. GASMOTIN [Concomitant]
     Dosage: UNK
  2. NESINA [Suspect]
     Indication: TYPE 2 DIABETES MELLITUS
     Dosage: 25 MG, 1X/DAY
     Route: 048
     Dates: start: 20120401
  3. METFORMIN HCL [Suspect]
     Indication: TYPE 2 DIABETES MELLITUS
     Dosage: 750 MG, 1X/DAY
     Route: 048
     Dates: start: 20080309
  4. CANDESARTAN CILEXETIL [Concomitant]
     Dosage: UNK
     Dates: start: 20010622
  5. MIGLITOL [Suspect]
     Indication: TYPE 2 DIABETES MELLITUS
     Dosage: 50 MG, 3X/DAY
     Route: 048
     Dates: start: 20070307, end: 20120608
  6. TOLEDOMIN [Concomitant]
     Dosage: UNK
  7. LORAZEPAM [Concomitant]
     Dosage: UNK
  8. ATELEC [Concomitant]
     Dosage: UNK
     Dates: start: 20061101

REACTIONS (2)
  - VOMITING [None]
  - SUBILEUS [None]
